FAERS Safety Report 8382474-7 (Version None)
Quarter: 2012Q2

REPORT INFORMATION
  Report Type: 
  Country: None (occurrence: None)
  Receive Date: 20120524
  Receipt Date: 20120518
  Transmission Date: 20120825
  Serious: Yes (Other)
  Sender: FDA-Public Use
  Company Number: PHHY2012CA042716

PATIENT
  Sex: Male

DRUGS (2)
  1. PAMIDRONATE DISODIUM [Suspect]
     Indication: FRACTURE
  2. TETRACYCLINE [Concomitant]

REACTIONS (6)
  - SCOLIOSIS [None]
  - OSTEOSCLEROSIS [None]
  - RENAL IMPAIRMENT [None]
  - FRACTURE [None]
  - OSTEOGENESIS IMPERFECTA [None]
  - KYPHOSIS [None]
